FAERS Safety Report 6080734-6 (Version None)
Quarter: 2009Q1

REPORT INFORMATION
  Report Type: 
  Country: None (occurrence: None)
  Receive Date: 20090217
  Receipt Date: 20090205
  Transmission Date: 20090719
  Serious: Yes (Hospitalization)
  Sender: FDA-Public Use
  Company Number: CH-ELI_LILLY_AND_COMPANY-CH200902001284

PATIENT
  Age: 40 Year
  Sex: Female

DRUGS (2)
  1. ZYPREXA [Suspect]
     Indication: DEPRESSION
     Dosage: 5 MG, 3/D
     Route: 048
     Dates: end: 20081207
  2. TRITTICO [Concomitant]
     Dosage: 100 MG, DAILY (1/D)
     Route: 048

REACTIONS (4)
  - AMENORRHOEA [None]
  - GALACTORRHOEA [None]
  - SKIN NECROSIS [None]
  - SLEEP DISORDER [None]
